FAERS Safety Report 14953826 (Version 2)
Quarter: 2018Q3

REPORT INFORMATION
  Report Type: Spontaneous
  Country: US (occurrence: US)
  Receive Date: 20180530
  Receipt Date: 20180706
  Transmission Date: 20181010
  Serious: No
  Sender: FDA-Public Use
  Company Number: US-ASTRAZENECA-2018SE59718

PATIENT
  Age: 80 Year
  Sex: Female
  Weight: 70.8 kg

DRUGS (16)
  1. ALBUTEROL INHALER [Concomitant]
     Active Substance: ALBUTEROL
     Dosage: AS REQUIRED
  2. PRAVASTATIN. [Concomitant]
     Active Substance: PRAVASTATIN
     Indication: BLOOD CHOLESTEROL ABNORMAL
     Route: 048
  3. TYLENOL [Concomitant]
     Active Substance: ACETAMINOPHEN
     Indication: BACK PAIN
     Dosage: 1 OR 2 A DAY, 10 OR 12 YEARS AGO
     Route: 048
  4. KEPPRA [Concomitant]
     Active Substance: LEVETIRACETAM
     Indication: TRIGEMINAL NEURALGIA
     Route: 048
  5. MULTIVITAMIN [Concomitant]
     Active Substance: VITAMINS
  6. CALCIUM CARBONATE WITH VITAMIN D [Concomitant]
     Active Substance: CALCIUM CARBONATE\ERGOCALCIFEROL
     Indication: MUSCLE SPASMS
     Route: 048
  7. FISH OIL [Concomitant]
     Active Substance: FISH OIL
     Indication: CARDIOVASCULAR EVENT PROPHYLAXIS
     Route: 048
  8. TESSALON [Concomitant]
     Active Substance: BENZONATATE
     Indication: COUGH
     Dosage: AS REQUIRED
  9. SYMBICORT [Suspect]
     Active Substance: BUDESONIDE\FORMOTEROL FUMARATE DIHYDRATE
     Indication: PNEUMONIA VIRAL
     Dosage: 80/4.5 MICROGRAMS 2 PUFFS TWO TIMES A DAY
     Route: 055
     Dates: start: 20180419
  10. SALINE [Concomitant]
     Active Substance: SODIUM CHLORIDE
  11. CALCIUM CARBONATE WITH VITAMIN D [Concomitant]
     Active Substance: CALCIUM CARBONATE\ERGOCALCIFEROL
     Indication: OSTEOPOROSIS
     Route: 048
  12. SYMBICORT [Suspect]
     Active Substance: BUDESONIDE\FORMOTEROL FUMARATE DIHYDRATE
     Indication: HYPERSENSITIVITY
     Dosage: 80/4.5 MICROGRAMS 2 PUFFS TWO TIMES A DAY
     Route: 055
     Dates: start: 20180419
  13. SYMBICORT [Suspect]
     Active Substance: BUDESONIDE\FORMOTEROL FUMARATE DIHYDRATE
     Indication: TRACHEOBRONCHITIS
     Dosage: 80/4.5 MICROGRAMS 2 PUFFS TWO TIMES A DAY
     Route: 055
     Dates: start: 20180419
  14. NASOCORT SPRAY [Concomitant]
     Indication: HYPERSENSITIVITY
     Dosage: TWICE A DAY, AS NEEDED, 1 SPRAY IN EACH NOSTRIL WHEN NOT SYMPTOMATIC AND 2 SPRAYS IN EACH NOSTRIL...
     Route: 045
     Dates: start: 1986
  15. ALLEGRA [Concomitant]
     Active Substance: FEXOFENADINE HYDROCHLORIDE
     Indication: HYPERSENSITIVITY
     Route: 048
  16. SYNTHROID [Concomitant]
     Active Substance: LEVOTHYROXINE SODIUM
     Indication: HYPOTHYROIDISM
     Dosage: 50.0UG UNKNOWN
     Route: 048

REACTIONS (12)
  - Oral discomfort [Unknown]
  - Ill-defined disorder [Unknown]
  - Tracheobronchitis [Unknown]
  - Malaise [Unknown]
  - Off label use [Unknown]
  - Product use in unapproved indication [Unknown]
  - Device issue [Unknown]
  - Hypersensitivity [Unknown]
  - Pneumonia viral [Unknown]
  - Intentional product misuse [Unknown]
  - Drug dose omission [Unknown]
  - Intentional device misuse [Unknown]
